FAERS Safety Report 5127589-1 (Version None)
Quarter: 2006Q4

REPORT INFORMATION
  Report Type: 
  Country: None (occurrence: None)
  Receive Date: 20061016
  Receipt Date: 20061005
  Transmission Date: 20070319
  Serious: Yes (Hospitalization)
  Sender: FDA-Public Use
  Company Number: US-JNJFOC-20061001859

PATIENT
  Sex: Female
  Weight: 50.8 kg

DRUGS (2)
  1. REMICADE [Suspect]
     Indication: CROHN'S DISEASE
     Dosage: DOSAGE: 2 VIALS
     Route: 042
  2. 5 ASA [Concomitant]
     Indication: CROHN'S DISEASE
     Dosage: DURATION: 6 MONTHS PLUS

REACTIONS (1)
  - LARYNGITIS [None]
